FAERS Safety Report 5024382-5 (Version None)
Quarter: 2006Q2

REPORT INFORMATION
  Report Type: 
  Country: None (occurrence: None)
  Receive Date: 20060608
  Receipt Date: 20060608
  Transmission Date: 20061013
  Serious: Yes (Hospitalization, Other)
  Sender: FDA-Public Use
  Company Number: None

PATIENT
  Sex: Female
  Weight: 48.63 kg

DRUGS (2)
  1. XELODA [Suspect]
     Indication: ADENOCARCINOMA
     Dosage: 18.15 MG
     Dates: start: 20060417, end: 20060502
  2. CAMPTOSAR [Suspect]
     Dosage: 146 MG
     Dates: start: 20060417, end: 20060425

REACTIONS (5)
  - ABDOMINAL PAIN [None]
  - DEHYDRATION [None]
  - DIARRHOEA [None]
  - ILEUS [None]
  - SMALL INTESTINAL OBSTRUCTION [None]
